FAERS Safety Report 8894987 (Version 1)
Quarter: 2012Q4

REPORT INFORMATION
  Report Type: 
  Country: US (occurrence: US)
  Receive Date: 20121107
  Receipt Date: 20121107
  Transmission Date: 20130627
  Serious: No
  Sender: FDA-Public Use
  Company Number: US-AMGEN-USASP2011049155

PATIENT
  Age: 54 Year
  Sex: Female
  Weight: 63.04 kg

DRUGS (10)
  1. ENBREL [Suspect]
     Indication: PRODUCT USED FOR UNKNOWN INDICATION
     Dosage: 50 mg, qwk
  2. TOPAMAX [Concomitant]
     Dosage: 50 mg, UNK
  3. TRILEPTAL [Concomitant]
     Dosage: 150 mg, UNK
  4. SIMVASTATIN [Concomitant]
     Dosage: 100 mg, UNK
  5. METOPROLOL [Concomitant]
     Dosage: 100 mg, UNK
  6. PLAVIX                             /01220701/ [Concomitant]
     Dosage: 75 mg, UNK
  7. ASPIRIN [Concomitant]
     Dosage: 81 mg, UNK
  8. CALCIUM [Concomitant]
  9. MAGNESIUM [Concomitant]
  10. VITAMIN D /00107901/ [Concomitant]

REACTIONS (2)
  - Injection site pain [Unknown]
  - Injection site bruising [Unknown]
